FAERS Safety Report 5642719-0 (Version None)
Quarter: 2008Q1

REPORT INFORMATION
  Report Type: 
  Country: None (occurrence: None)
  Receive Date: 20080227
  Receipt Date: 20080227
  Transmission Date: 20080703
  Serious: Yes (Hospitalization)
  Sender: FDA-Public Use
  Company Number: None

PATIENT
  Sex: Female

DRUGS (1)
  1. ASPIRIN [Suspect]
     Dosage: 81MG PO QD  (THERAPY DATES: PRIOR TO ADMISSION)
     Route: 048

REACTIONS (5)
  - HAEMATOCHEZIA [None]
  - HYPERHIDROSIS [None]
  - MELAENA [None]
  - NAUSEA [None]
  - PALLOR [None]
